FAERS Safety Report 7489477-5 (Version None)
Quarter: 2011Q2

REPORT INFORMATION
  Report Type: 
  Country: None (occurrence: None)
  Receive Date: 20110518
  Receipt Date: 20110505
  Transmission Date: 20111010
  Serious: Yes (Hospitalization)
  Sender: FDA-Public Use
  Company Number: DE-SANOFI-AVENTIS-2011SA029388

PATIENT
  Age: 69 Year
  Sex: Male

DRUGS (5)
  1. OXALIPLATIN [Suspect]
     Indication: RECTAL CANCER
     Route: 041
     Dates: start: 20100913
  2. CAPECITABINE [Suspect]
     Indication: RECTAL CANCER
     Route: 048
     Dates: start: 20100913
  3. THERAPEUTIC RADIOPHARMACEUTICALS [Suspect]
     Indication: RECTAL CANCER
  4. SIMVASTATIN [Concomitant]
  5. LORZAAR [Concomitant]

REACTIONS (1)
  - LEUKOENCEPHALOPATHY [None]
